FAERS Safety Report 9384645 (Version 1)
Quarter: 2013Q3

REPORT INFORMATION
  Report Type: Spontaneous
  Country: US (occurrence: US)
  Receive Date: 20130705
  Receipt Date: 20130705
  Transmission Date: 20140515
  Serious: Yes (Other)
  Sender: FDA-Public Use
  Company Number: US-PFIZER INC-2013197520

PATIENT
  Age: 38 Year
  Sex: Female
  Weight: 86.17 kg

DRUGS (3)
  1. CHANTIX [Suspect]
     Indication: SMOKING CESSATION THERAPY
     Dosage: 0.5 MG, 1X/DAY
     Route: 048
     Dates: start: 20111224
  2. CHANTIX [Suspect]
     Dosage: 1 MG, 2X/DAY
     Route: 048
     Dates: end: 201203
  3. CHANTIX [Suspect]
     Dosage: 0.5 MG (HALF TABLET OF 1MG), 2X/DAY
     Route: 048
     Dates: start: 201203, end: 201203

REACTIONS (4)
  - Hypertension [Unknown]
  - Blood pressure increased [Unknown]
  - Hypothyroidism [Unknown]
  - Agitation [Recovered/Resolved]
